FAERS Safety Report 19021482 (Version 1)
Quarter: 2021Q1

REPORT INFORMATION
  Report Type: Other
  Country: US (occurrence: US)
  Receive Date: 20210317
  Receipt Date: 20210317
  Transmission Date: 20210420
  Serious: Yes (Other)
  Sender: FDA-Public Use
  Company Number: US-ROCHE-2789489

PATIENT

DRUGS (4)
  1. SIROLIMUS. [Suspect]
     Active Substance: SIROLIMUS
     Indication: GRAFT VERSUS HOST DISEASE
     Route: 065
  2. MYCOPHENOLATE MOFETIL. [Suspect]
     Active Substance: MYCOPHENOLATE MOFETIL
     Indication: GRAFT VERSUS HOST DISEASE
     Route: 065
  3. IBRUTINIB [Suspect]
     Active Substance: IBRUTINIB
     Indication: GRAFT VERSUS HOST DISEASE
     Route: 065
  4. RUXOLITINIB [Suspect]
     Active Substance: RUXOLITINIB
     Indication: GRAFT VERSUS HOST DISEASE
     Route: 065

REACTIONS (15)
  - Pulmonary embolism [Unknown]
  - Fall [Unknown]
  - Upper respiratory tract infection [Unknown]
  - Sepsis [Unknown]
  - Acute kidney injury [Unknown]
  - Cytomegalovirus viraemia [Unknown]
  - Respiratory failure [Unknown]
  - Pyrexia [Unknown]
  - Diarrhoea [Unknown]
  - Fungal infection [Unknown]
  - Dyspnoea [Unknown]
  - Failure to thrive [Unknown]
  - Influenza [Unknown]
  - Febrile neutropenia [Unknown]
  - Pneumonia fungal [Unknown]
